FAERS Safety Report 20963014 (Version 1)
Quarter: 2022Q2

REPORT INFORMATION
  Report Type: Spontaneous
  Country: US (occurrence: None)
  Receive Date: 20220615
  Receipt Date: 20220615
  Transmission Date: 20220721
  Serious: Yes (Death, Hospitalization)
  Sender: FDA-Public Use
  Company Number: None

PATIENT
  Sex: Female
  Weight: 67.6 kg

DRUGS (2)
  1. PACLITAXEL [Suspect]
     Active Substance: PACLITAXEL
  2. GEMCITABINE HYDROCHLORIDE [Suspect]
     Active Substance: GEMCITABINE HYDROCHLORIDE
     Dates: end: 20220419

REACTIONS (9)
  - Diarrhoea [None]
  - Asthenia [None]
  - Gait disturbance [None]
  - Limbal swelling [None]
  - Abdominal pain [None]
  - Cellulitis [None]
  - Hypovolaemia [None]
  - Septic shock [None]
  - Shock [None]

NARRATIVE: CASE EVENT DATE: 20220424
